FAERS Safety Report 20291567 (Version 1)
Quarter: 2022Q1

REPORT INFORMATION
  Report Type: Spontaneous
  Country: AR (occurrence: AR)
  Receive Date: 20220104
  Receipt Date: 20220104
  Transmission Date: 20220423
  Serious: Yes (Other)
  Sender: FDA-Public Use
  Company Number: AR-BIOMARINAP-AR-2021-140454

PATIENT
  Age: 15 Year
  Sex: Female
  Weight: 44.3 kg

DRUGS (1)
  1. NAGLAZYME [Suspect]
     Active Substance: GALSULFASE
     Indication: Mucopolysaccharidosis VI
     Dosage: 1 MILLIGRAM/KILOGRAM, QW
     Route: 042

REACTIONS (1)
  - Catheter placement [Recovering/Resolving]

NARRATIVE: CASE EVENT DATE: 20211227
